FAERS Safety Report 5512892-3 (Version None)
Quarter: 2007Q4

REPORT INFORMATION
  Report Type: 
  Country: None (occurrence: None)
  Receive Date: 20071112
  Receipt Date: 20071106
  Transmission Date: 20080405
  Serious: Yes (Other)
  Sender: FDA-Public Use
  Company Number: A0691721A

PATIENT
  Age: 57 Year
  Sex: Female

DRUGS (10)
  1. ADVAIR DISKUS 100/50 [Suspect]
     Indication: CHRONIC OBSTRUCTIVE PULMONARY DISEASE
     Dosage: 1PUFF TWICE PER DAY
     Route: 055
     Dates: start: 20030301
  2. LISINOPRIL [Concomitant]
  3. VERAPAMIL [Concomitant]
  4. ZOLOFT [Concomitant]
  5. GLIPIZIDE [Concomitant]
  6. ASPIRIN [Concomitant]
  7. BETA BLOCKER [Concomitant]
  8. OXYGEN [Concomitant]
  9. COMBIVENT [Concomitant]
  10. EYE DROPS [Concomitant]

REACTIONS (3)
  - CORNEAL SCAR [None]
  - DRY EYE [None]
  - VISION BLURRED [None]
